FAERS Safety Report 7338938-8 (Version None)
Quarter: 2011Q1

REPORT INFORMATION
  Report Type: 
  Country: None (occurrence: None)
  Receive Date: 20110304
  Receipt Date: 20110304
  Transmission Date: 20110831
  Serious: Yes (Hospitalization)
  Sender: FDA-Public Use
  Company Number: None

PATIENT
  Sex: Male
  Weight: 114 kg

DRUGS (2)
  1. TAXOL [Suspect]
     Dosage: 106 MG
     Dates: end: 20110222
  2. CARBOPLATIN [Suspect]
     Dosage: 300 MG
     Dates: end: 20110222

REACTIONS (2)
  - DYSPNOEA [None]
  - PRODUCTIVE COUGH [None]
